FAERS Safety Report 5124437-0 (Version None)
Quarter: 2006Q4

REPORT INFORMATION
  Report Type: 
  Country: None (occurrence: None)
  Receive Date: 20060816
  Receipt Date: 20060616
  Transmission Date: 20070319
  Serious: No
  Sender: FDA-Public Use
  Company Number: US200606004023

PATIENT
  Age: 58 Year
  Sex: Male

DRUGS (3)
  1. CIALIS [Suspect]
     Indication: ERECTILE DYSFUNCTION
     Dosage: 5 + 1/2 10 + 14 20 + 1/2 20 30 MG, AS NEEDED, UNK- SEE IMAGE
     Dates: start: 20050101
  2. CIALIS [Suspect]
     Indication: ERECTILE DYSFUNCTION
     Dosage: 5 + 1/2 10 + 14 20 + 1/2 20 30 MG, AS NEEDED, UNK- SEE IMAGE
     Dates: start: 20060601
  3. CIALIS [Suspect]
     Indication: ERECTILE DYSFUNCTION
     Dosage: 5 + 1/2 10 + 14 20 + 1/2 20 30 MG, AS NEEDED, UNK- SEE IMAGE
     Dates: start: 20060601

REACTIONS (1)
  - DRUG INEFFECTIVE [None]
